FAERS Safety Report 21081787 (Version 3)
Quarter: 2022Q4

REPORT INFORMATION
  Report Type: Report from Study
  Country: US (occurrence: US)
  Receive Date: 20220714
  Receipt Date: 20221228
  Transmission Date: 20230112
  Serious: Yes (Other)
  Sender: FDA-Public Use
  Company Number: US-JAZZ-2022-US-004665

PATIENT
  Age: 46 Year
  Sex: Female

DRUGS (7)
  1. XYREM [Suspect]
     Active Substance: SODIUM OXYBATE
     Indication: Narcolepsy
     Dosage: UNK
     Route: 048
  2. XYREM [Suspect]
     Active Substance: SODIUM OXYBATE
     Indication: Cataplexy
  3. XYREM [Suspect]
     Active Substance: SODIUM OXYBATE
     Indication: Somnolence
  4. VENLAFAXINE [Concomitant]
     Active Substance: VENLAFAXINE HYDROCHLORIDE
     Indication: Product used for unknown indication
     Dosage: 50 MILLIGRAM, QD
  5. MODAFINIL [Concomitant]
     Active Substance: MODAFINIL
     Indication: Product used for unknown indication
     Dosage: 2 TABLET ONCE DAILY IN THE MORNING
     Route: 048
  6. DIGESTIVE ENZYMES V COMPLEX [Concomitant]
     Dosage: UNK
     Dates: start: 20220726
  7. PROVIGIL [Concomitant]
     Active Substance: MODAFINIL
     Dosage: UNK
     Dates: start: 20220601

REACTIONS (5)
  - Cholecystectomy [Unknown]
  - Adenomyosis [Unknown]
  - Head injury [Unknown]
  - Hepatic enzyme increased [Unknown]
  - Neuralgia [Unknown]

NARRATIVE: CASE EVENT DATE: 20210101
